FAERS Safety Report 21128291 (Version 1)
Quarter: 2022Q3

REPORT INFORMATION
  Report Type: Spontaneous
  Country: US (occurrence: None)
  Receive Date: 20220725
  Receipt Date: 20220725
  Transmission Date: 20221027
  Serious: Yes (Hospitalization, Disabling)
  Sender: FDA-Public Use
  Company Number: None

PATIENT
  Age: 59 Year
  Sex: Female

DRUGS (1)
  1. EMGALITY [Suspect]
     Active Substance: GALCANEZUMAB-GNLM
     Indication: Migraine without aura
     Dosage: FREQUENCY : MONTHLY;?
     Route: 058
     Dates: start: 20211124, end: 20220630

REACTIONS (4)
  - Metamorphopsia [None]
  - Diplopia [None]
  - Impaired work ability [None]
  - Loss of personal independence in daily activities [None]

NARRATIVE: CASE EVENT DATE: 20220701
